FAERS Safety Report 10373515 (Version 1)
Quarter: 2014Q3

REPORT INFORMATION
  Report Type: Report from Study
  Country: US (occurrence: US)
  Receive Date: 20140808
  Receipt Date: 20140808
  Transmission Date: 20150326
  Serious: Yes (Other)
  Sender: FDA-Public Use
  Company Number: US-ABBVIE-14P-163-1267853-00

PATIENT
  Age: 31 Year
  Sex: Female

DRUGS (6)
  1. RETROVIR [Suspect]
     Active Substance: ZIDOVUDINE
     Route: 042
     Dates: start: 20140521, end: 20140521
  2. RETROVIR [Suspect]
     Active Substance: ZIDOVUDINE
     Indication: ANTIRETROVIRAL THERAPY
     Route: 042
     Dates: start: 20140521, end: 20140521
  3. TRUVADA [Suspect]
     Active Substance: EMTRICITABINE\TENOFOVIR DISOPROXIL FUMARATE
     Indication: ANTIRETROVIRAL THERAPY
     Dosage: 1 TAB/CAPS
     Route: 048
     Dates: start: 20131226
  4. RITONAVIR [Suspect]
     Active Substance: RITONAVIR
     Indication: ANTIRETROVIRAL THERAPY
     Route: 048
     Dates: start: 20131226, end: 20140313
  5. TIVICAY [Suspect]
     Active Substance: DOLUTEGRAVIR SODIUM
     Indication: ANTIRETROVIRAL THERAPY
     Route: 048
     Dates: start: 20140313
  6. PREZISTA [Suspect]
     Active Substance: DARUNAVIR ETHANOLATE
     Indication: ANTIRETROVIRAL THERAPY
     Route: 048
     Dates: start: 20130326, end: 20140313

REACTIONS (2)
  - Rheumatic heart disease [Unknown]
  - Heart valve stenosis [Unknown]
